FAERS Safety Report 18843272 (Version 1)
Quarter: 2021Q1

REPORT INFORMATION
  Report Type: Report from Study
  Country: US (occurrence: US)
  Receive Date: 20210203
  Receipt Date: 20210203
  Transmission Date: 20210419
  Serious: No
  Sender: FDA-Public Use
  Company Number: US-EXELIXIS-CABO-19025873

PATIENT
  Sex: Male
  Weight: 81.63 kg

DRUGS (1)
  1. CABOMETYX [Suspect]
     Active Substance: CABOZANTINIB S-MALATE
     Indication: RENAL CANCER
     Dosage: 40 MG, QD (20 MG X2, TAKE 2 TABLET BY MOUTH ONCE DAILY)
     Route: 048

REACTIONS (1)
  - Nasal obstruction [Unknown]
